FAERS Safety Report 6422082-8 (Version None)
Quarter: 2009Q4

REPORT INFORMATION
  Report Type: 
  Country: None (occurrence: None)
  Receive Date: 20091030
  Receipt Date: 20091027
  Transmission Date: 20100525
  Serious: Yes (Congenital Anomaly)
  Sender: FDA-Public Use
  Company Number: UA-JNJFOC-20091006449

PATIENT
  Sex: Female
  Weight: 3.28 kg

DRUGS (1)
  1. ORUNGAL [Suspect]
     Indication: DRUG EXPOSURE DURING PREGNANCY
     Dates: start: 20081202, end: 20090108

REACTIONS (3)
  - CHONDRODYSTROPHY [None]
  - CONGENITAL HYDROCEPHALUS [None]
  - LIMB REDUCTION DEFECT [None]
